FAERS Safety Report 4762168-7 (Version None)
Quarter: 2005Q3

REPORT INFORMATION
  Report Type: 
  Country: None (occurrence: None)
  Receive Date: 20050906
  Receipt Date: 20050906
  Transmission Date: 20060218
  Serious: No
  Sender: FDA-Public Use
  Company Number: None

PATIENT
  Age: 67 Year
  Sex: Female
  Weight: 70 kg

DRUGS (11)
  1. DEPODUR [Suspect]
     Indication: PAIN MANAGEMENT
     Dosage: 15 MG    ONCE    IM
     Route: 030
     Dates: start: 20050830, end: 20050831
  2. FORANE GAS [Concomitant]
  3. DIPRIVAN [Concomitant]
  4. VERSED [Concomitant]
  5. ZEMURON [Concomitant]
  6. DECADRON [Concomitant]
  7. KYTRIL [Concomitant]
  8. EPHEDINE [Concomitant]
  9. LACTATED RINGER'S [Concomitant]
  10. CLINDAMICIN [Concomitant]
  11. MORPHINE [Concomitant]

REACTIONS (6)
  - APNOEA [None]
  - CONFUSIONAL STATE [None]
  - DEPRESSED LEVEL OF CONSCIOUSNESS [None]
  - OXYGEN SATURATION DECREASED [None]
  - POST PROCEDURAL COMPLICATION [None]
  - RESPIRATORY RATE DECREASED [None]
